FAERS Safety Report 5970904-7 (Version None)
Quarter: 2008Q4

REPORT INFORMATION
  Report Type: 
  Country: None (occurrence: None)
  Receive Date: 20081128
  Receipt Date: 20081118
  Transmission Date: 20090506
  Serious: Yes (Other)
  Sender: FDA-Public Use
  Company Number: PHEH2008US09727

PATIENT
  Age: 58 Year
  Sex: Female

DRUGS (4)
  1. EXFORGE [Suspect]
     Indication: HYPERTENSION
     Dosage: 160 MG, UNK
     Dates: start: 20081001
  2. ADVIL [Concomitant]
     Indication: BACK PAIN
  3. ADVIL [Concomitant]
     Indication: ARTHRITIS
  4. ANALGESICS [Concomitant]
     Indication: BACK PAIN

REACTIONS (1)
  - BLOOD PRESSURE INCREASED [None]
